FAERS Safety Report 17690411 (Version 1)
Quarter: 2020Q2

REPORT INFORMATION
  Report Type: Spontaneous
  Country: US (occurrence: US)
  Receive Date: 20200421
  Receipt Date: 20200421
  Transmission Date: 20200714
  Serious: No
  Sender: FDA-Public Use
  Company Number: US-TEIKOKU PHARMA USA-TPU2020-00189

PATIENT
  Sex: Female
  Weight: 63.11 kg

DRUGS (3)
  1. ATORVASTATIN [Concomitant]
     Active Substance: ATORVASTATIN
  2. PROLIA [Concomitant]
     Active Substance: DENOSUMAB
  3. LIDODERM [Suspect]
     Active Substance: LIDOCAINE
     Indication: COMPLEX REGIONAL PAIN SYNDROME
     Dates: start: 2002

REACTIONS (1)
  - Prescription drug used without a prescription [Unknown]
